FAERS Safety Report 8183377-3 (Version None)
Quarter: 2012Q1

REPORT INFORMATION
  Report Type: 
  Country: None (occurrence: None)
  Receive Date: 20120130
  Receipt Date: 20111031
  Transmission Date: 20120608
  Serious: Yes (Other)
  Sender: FDA-Public Use
  Company Number: 044645

PATIENT
  Sex: Male
  Weight: 70.7 kg

DRUGS (2)
  1. KEPPRA [Suspect]
     Indication: CONVULSION
     Dosage: (1000 MG BID ORAL)
     Route: 048
     Dates: end: 20111027
  2. TOPAMAX [Concomitant]

REACTIONS (1)
  - CONVULSION [None]
